FAERS Safety Report 7646615-9 (Version None)
Quarter: 2011Q3

REPORT INFORMATION
  Report Type: 
  Country: None (occurrence: None)
  Receive Date: 20110725
  Receipt Date: 20110719
  Transmission Date: 20111222
  Serious: Yes (Hospitalization)
  Sender: FDA-Public Use
  Company Number: 2011JP005734

PATIENT
  Age: 63 Year
  Sex: Male
  Weight: 45 kg

DRUGS (6)
  1. ALOXI [Suspect]
     Indication: PROPHYLAXIS OF NAUSEA AND VOMITING
     Dosage: INTRAVENOUS
     Route: 042
     Dates: start: 20110101
  2. CISPLATIN [Suspect]
     Indication: METASTATIC GASTRIC CANCER
     Dosage: 60 MG/M2, SINGLE IV DRIP, 60 MG/M2, SINGLE, IV DRIP
     Route: 041
     Dates: start: 20110425
  3. CISPLATIN [Suspect]
     Indication: METASTATIC GASTRIC CANCER
     Dosage: 60 MG/M2, SINGLE IV DRIP, 60 MG/M2, SINGLE, IV DRIP
     Route: 041
     Dates: start: 20110628
  4. TS 1 (GIMERACIL, OTERACIL POTASSIUM, TEGAFUR) [Suspect]
     Indication: METASTATIC GASTRIC CANCER
     Dosage: 45 MG BID, 2W ON 1W OFF, ORAL; 45 MG BID, 2W ON 1W OFF, ORAL; 45 MG BID, 2W ON 1W OFF, ORAL
     Route: 048
     Dates: start: 20110425
  5. TS 1 (GIMERACIL, OTERACIL POTASSIUM, TEGAFUR) [Suspect]
     Indication: METASTATIC GASTRIC CANCER
     Dosage: 45 MG BID, 2W ON 1W OFF, ORAL; 45 MG BID, 2W ON 1W OFF, ORAL; 45 MG BID, 2W ON 1W OFF, ORAL
     Route: 048
     Dates: start: 20110705
  6. TS 1 (GIMERACIL, OTERACIL POTASSIUM, TEGAFUR) [Suspect]
     Indication: METASTATIC GASTRIC CANCER
     Dosage: 45 MG BID, 2W ON 1W OFF, ORAL; 45 MG BID, 2W ON 1W OFF, ORAL; 45 MG BID, 2W ON 1W OFF, ORAL
     Route: 048
     Dates: start: 20110628, end: 20110703

REACTIONS (2)
  - ILEUS [None]
  - CONSTIPATION [None]
